FAERS Safety Report 19514160 (Version 1)
Quarter: 2021Q3

REPORT INFORMATION
  Report Type: Spontaneous
  Country: BR (occurrence: BR)
  Receive Date: 20210709
  Receipt Date: 20210709
  Transmission Date: 20211014
  Serious: Yes (Hospitalization)
  Sender: FDA-Public Use
  Company Number: BR-PURDUE-USA-2021-0274139

PATIENT
  Age: 60 Year
  Sex: Female

DRUGS (1)
  1. RESTIVA [Suspect]
     Active Substance: BUPRENORPHINE
     Indication: ARTHRALGIA
     Dosage: UNK (STRENGTH: 5 MG)
     Route: 062
     Dates: start: 20210626, end: 20210628

REACTIONS (6)
  - Application site erythema [Unknown]
  - Application site pruritus [Unknown]
  - Feeding disorder [Recovered/Resolved]
  - Nausea [Not Recovered/Not Resolved]
  - Vomiting [Recovered/Resolved]
  - Asthenia [Unknown]

NARRATIVE: CASE EVENT DATE: 20210627
